APPROVED DRUG PRODUCT: DIGOXIN
Active Ingredient: DIGOXIN
Strength: 0.25MG
Dosage Form/Route: TABLET;ORAL
Application: A077002 | Product #001 | TE Code: AB
Applicant: HIKMA INTERNATIONAL PHARMACEUTICALS LLC
Approved: Oct 30, 2007 | RLD: No | RS: No | Type: RX